FAERS Safety Report 9840790 (Version 1)
Quarter: 2013Q4

REPORT INFORMATION
  Report Type: Spontaneous
  Country: US (occurrence: None)
  Receive Date: 20131211
  Receipt Date: 20131211
  Transmission Date: 20140711
  Serious: Yes (Hospitalization)
  Sender: FDA-Public Use
  Company Number: ALL1-2012-03805

PATIENT
  Age: 58 Year
  Sex: Female
  Weight: 37.6 kg

DRUGS (4)
  1. PENTASA [Suspect]
     Indication: COLITIS ULCERATIVE
     Dosage: 3X/DAY
     Route: 048
  2. PENTASA [Suspect]
     Indication: CROHN^S DISEASE
     Dosage: 3X/DAY
     Route: 048
  3. ZYRTEC [Concomitant]
  4. NASONEX [Concomitant]

REACTIONS (4)
  - Chest pain [None]
  - Gastritis [None]
  - Nausea [None]
  - Constipation [None]
